FAERS Safety Report 26037713 (Version 1)
Quarter: 2025Q4

REPORT INFORMATION
  Report Type: Report from Study
  Country: EU (occurrence: EU)
  Receive Date: 20251112
  Receipt Date: 20251112
  Transmission Date: 20260118
  Serious: Yes (Other)
  Sender: ABBVIE
  Company Number: EU-ABBVIE-6544500

PATIENT
  Age: 62 Year
  Sex: Male

DRUGS (1)
  1. FOSCARBIDOPA\FOSLEVODOPA [Suspect]
     Active Substance: FOSCARBIDOPA\FOSLEVODOPA
     Indication: Parkinson^s disease
     Dosage: DAILY DOSE: 1.680MG ??CRL: 0.24ML/H ?CRB: 0.28ML/H ?CRH: 0.3ML/H ED: ?0.3ML LD: 0ML
     Route: 058
     Dates: start: 20250411

REACTIONS (1)
  - Angioplasty [Recovered/Resolved]

NARRATIVE: CASE EVENT DATE: 20250930
